FAERS Safety Report 10409459 (Version 1)
Quarter: 2014Q3

REPORT INFORMATION
  Report Type: Spontaneous
  Country: US (occurrence: None)
  Receive Date: 20140825
  Receipt Date: 20140825
  Transmission Date: 20150326
  Serious: No
  Sender: FDA-Public Use
  Company Number: None

PATIENT
  Age: 50 Year
  Sex: Male
  Weight: 78.4 kg

DRUGS (1)
  1. INTRON A [Suspect]
     Active Substance: INTERFERON ALFA-2B
     Dates: end: 20140423

REACTIONS (4)
  - Presyncope [None]
  - Hypoglycaemia [None]
  - Hyperphagia [None]
  - Visual impairment [None]

NARRATIVE: CASE EVENT DATE: 20140424
